FAERS Safety Report 22087447 (Version 2)
Quarter: 2023Q1

REPORT INFORMATION
  Report Type: Spontaneous
  Country: UA (occurrence: UA)
  Receive Date: 20230313
  Receipt Date: 20230323
  Transmission Date: 20230417
  Serious: Yes (Other)
  Sender: FDA-Public Use
  Company Number: UA-002147023-NVSC2023UA054564

PATIENT
  Sex: Female

DRUGS (2)
  1. CARBOPLATIN [Suspect]
     Active Substance: CARBOPLATIN
     Indication: Lung adenocarcinoma
     Dosage: UNK (4 COURSES OF ADJUVANT POLYCHEMOTHERAPY)
     Route: 065
     Dates: start: 202102, end: 202104
  2. PEMETREXED [Suspect]
     Active Substance: PEMETREXED
     Indication: Lung adenocarcinoma
     Dosage: UNK (4 COURSES OF ADJUVANT POLYCHEMOTHERAPY)
     Route: 065
     Dates: start: 202102, end: 202104

REACTIONS (4)
  - Metastases to lymph nodes [Recovering/Resolving]
  - Metastases to lung [Recovering/Resolving]
  - Malignant neoplasm progression [Recovering/Resolving]
  - Lung adenocarcinoma [Recovering/Resolving]

NARRATIVE: CASE EVENT DATE: 20210701
